FAERS Safety Report 25478943 (Version 1)
Quarter: 2025Q2

REPORT INFORMATION
  Report Type: Spontaneous
  Country: GR (occurrence: GR)
  Receive Date: 20250625
  Receipt Date: 20250625
  Transmission Date: 20250717
  Serious: No
  Sender: ORGANON
  Company Number: GR-ORGANON-O2501GRC003049

PATIENT
  Age: 37 Year
  Sex: Female

DRUGS (2)
  1. FOLLITROPIN BETA [Suspect]
     Active Substance: FOLLITROPIN BETA
     Indication: In vitro fertilisation
     Dosage: UNK UNK, QD
     Dates: start: 20250117, end: 20250120
  2. FOLLITROPIN BETA [Suspect]
     Active Substance: FOLLITROPIN BETA

REACTIONS (3)
  - Drug ineffective [Unknown]
  - Incorrect dosage administered [Unknown]
  - Device malfunction [Unknown]

NARRATIVE: CASE EVENT DATE: 20250101
